FAERS Safety Report 11859676 (Version 2)
Quarter: 2015Q4

REPORT INFORMATION
  Report Type: Report from Study
  Country: CA (occurrence: CA)
  Receive Date: 20151221
  Receipt Date: 20151223
  Transmission Date: 20160305
  Serious: Yes (Other)
  Sender: FDA-Public Use
  Company Number: CA-ABBVIE-14K-028-1286622-00

PATIENT
  Sex: Female

DRUGS (2)
  1. HUMIRA [Suspect]
     Active Substance: ADALIMUMAB
     Route: 058
     Dates: start: 2014, end: 201502
  2. HUMIRA [Suspect]
     Active Substance: ADALIMUMAB
     Indication: CROHN^S DISEASE
     Route: 058
     Dates: start: 20131211, end: 2014

REACTIONS (5)
  - Drug ineffective [Not Recovered/Not Resolved]
  - Abdominal adhesions [Unknown]
  - Crohn^s disease [Not Recovered/Not Resolved]
  - Gastrointestinal inflammation [Unknown]
  - Drug specific antibody present [Not Recovered/Not Resolved]
